FAERS Safety Report 23570594 (Version 2)
Quarter: 2024Q1

REPORT INFORMATION
  Report Type: Spontaneous
  Country: US (occurrence: US)
  Receive Date: 20240227
  Receipt Date: 20240329
  Transmission Date: 20240410
  Serious: No
  Sender: FDA-Public Use
  Company Number: US-BAYER-2024A028815

PATIENT
  Age: 65 Year
  Sex: Male
  Weight: 70.748 kg

DRUGS (21)
  1. ADEMPAS [Suspect]
     Active Substance: RIOCIGUAT
     Indication: Product used for unknown indication
     Dosage: UNK
  2. ADEMPAS [Suspect]
     Active Substance: RIOCIGUAT
     Indication: Product used for unknown indication
     Dosage: 2 MG, TID
     Dates: start: 202401
  3. TYVASO [Suspect]
     Active Substance: TREPROSTINIL
     Indication: Pulmonary arterial hypertension
     Dosage: 42 ?G, QID, INHALATION
     Dates: start: 20220116, end: 202401
  4. TYVASO [Suspect]
     Active Substance: TREPROSTINIL
     Indication: Pulmonary arterial hypertension
     Dosage: 18 ?G, QID, INHALATION
  5. TYVASO [Suspect]
     Active Substance: TREPROSTINIL
     Indication: Pulmonary arterial hypertension
     Dosage: 42 ?G, QID, INHALATION
  6. TYVASO [Suspect]
     Active Substance: TREPROSTINIL
     Indication: Pulmonary arterial hypertension
     Dosage: UNK
     Dates: start: 20220616
  7. DOXAZOSIN MESYLATE [Concomitant]
     Active Substance: DOXAZOSIN MESYLATE
  8. PREDNISONE [Concomitant]
     Active Substance: PREDNISONE
  9. BISOPROLOL FUMARATE [Concomitant]
     Active Substance: BISOPROLOL FUMARATE
  10. DORZOLAMIDE HYDROCHLORIDE [Concomitant]
     Active Substance: DORZOLAMIDE HYDROCHLORIDE
  11. OMEGA-3 FATTY ACIDS [Concomitant]
     Active Substance: OMEGA-3 FATTY ACIDS
  12. VITAMIN D3 [Concomitant]
     Active Substance: CHOLECALCIFEROL
  13. PRAVASTATIN SODIUM [Concomitant]
     Active Substance: PRAVASTATIN SODIUM
  14. PANTOPRAZOLE SODIUM [Concomitant]
     Active Substance: PANTOPRAZOLE SODIUM
  15. ALLOPURINOL [Concomitant]
     Active Substance: ALLOPURINOL
  16. DOCUSATE SODIUM [Concomitant]
     Active Substance: DOCUSATE SODIUM
  17. CALCIUM [Concomitant]
     Active Substance: CALCIUM
  18. FUROSEMIDE [Concomitant]
     Active Substance: FUROSEMIDE
  19. SODIUM BICARBONATE [Concomitant]
     Active Substance: SODIUM BICARBONATE
  20. HYDRALAZINE HCL [Concomitant]
     Active Substance: HYDRALAZINE HYDROCHLORIDE
  21. NIFEDIPINE [Concomitant]
     Active Substance: NIFEDIPINE

REACTIONS (2)
  - Hypotension [None]
  - Dialysis hypotension [None]

NARRATIVE: CASE EVENT DATE: 20240101
